FAERS Safety Report 15253664 (Version 1)
Quarter: 2018Q4

REPORT INFORMATION
  Report Type: Spontaneous
  Country: US (occurrence: US)
  Receive Date: 20180808
  Receipt Date: 20180808
  Transmission Date: 20190204
  Serious: Yes (Life-Threatening, Hospitalization, Other)
  Sender: FDA-Public Use
  Company Number: US-HIKMA PHARMACEUTICALS USA INC.-US-H14001-18-06288

PATIENT
  Age: 32 Year
  Sex: Female

DRUGS (1)
  1. CALCIUM CARBONATE. [Suspect]
     Active Substance: CALCIUM CARBONATE
     Indication: DYSPEPSIA
     Dosage: UP TO 12 GRAMS DAILY
     Route: 048

REACTIONS (4)
  - Pancreatitis acute [Recovered/Resolved]
  - Overdose [Recovered/Resolved]
  - Hypocalcaemia [Recovered/Resolved]
  - Milk-alkali syndrome [Recovered/Resolved]
